FAERS Safety Report 7375142-1 (Version None)
Quarter: 2011Q1

REPORT INFORMATION
  Report Type: 
  Country: None (occurrence: None)
  Receive Date: 20110325
  Receipt Date: 20110314
  Transmission Date: 20110831
  Serious: Yes (Other)
  Sender: FDA-Public Use
  Company Number: US-SANOFI-AVENTIS-2011SA015899

PATIENT

DRUGS (2)
  1. SOTALOL HCL [Suspect]
     Route: 065
  2. MULTAQ [Suspect]
     Route: 048

REACTIONS (1)
  - DRUG INEFFECTIVE [None]
